FAERS Safety Report 8398960-X (Version None)
Quarter: 2012Q2

REPORT INFORMATION
  Report Type: 
  Country: None (occurrence: None)
  Receive Date: 20120531
  Receipt Date: 20120523
  Transmission Date: 20120825
  Serious: Yes (Hospitalization)
  Sender: FDA-Public Use
  Company Number: JP-EISAI INC-E3810-05114-SPO-JP

PATIENT
  Sex: Male

DRUGS (5)
  1. LIPITOR [Concomitant]
     Route: 048
  2. CILNIDIPINE [Concomitant]
     Route: 048
  3. RABEPRAZOLE SODIUM [Suspect]
     Route: 048
     Dates: end: 20110820
  4. VITAMIN B12 [Concomitant]
     Route: 048
  5. CELEBREX [Concomitant]
     Route: 048

REACTIONS (1)
  - HYPOMAGNESAEMIA [None]
